FAERS Safety Report 16548558 (Version 2)
Quarter: 2019Q4

REPORT INFORMATION
  Report Type: Spontaneous
  Country: US (occurrence: US)
  Receive Date: 20190709
  Receipt Date: 20191107
  Transmission Date: 20200122
  Serious: Yes (Hospitalization)
  Sender: FDA-Public Use
  Company Number: US-MYLANLABS-2019M1063778

PATIENT
  Age: 60 Year
  Sex: Female

DRUGS (13)
  1. WARFARIN [Suspect]
     Active Substance: WARFARIN
     Indication: DEEP VEIN THROMBOSIS
     Route: 065
  2. AZATHIOPRINE. [Concomitant]
     Active Substance: AZATHIOPRINE
     Indication: SJOGREN^S SYNDROME
  3. METHOTREXATE. [Concomitant]
     Active Substance: METHOTREXATE
     Indication: SYSTEMIC LUPUS ERYTHEMATOSUS
  4. PREDNISONE. [Suspect]
     Active Substance: PREDNISONE
     Indication: SJOGREN^S SYNDROME
  5. METHOTREXATE. [Concomitant]
     Active Substance: METHOTREXATE
     Indication: MYASTHENIA GRAVIS
     Dosage: 10 MILLIGRAM, QW
     Route: 048
  6. APIXABAN [Concomitant]
     Active Substance: APIXABAN
     Indication: DEEP VEIN THROMBOSIS
     Dosage: 5 MILLIGRAM
     Route: 065
  7. PREDNISONE. [Suspect]
     Active Substance: PREDNISONE
     Indication: SYSTEMIC LUPUS ERYTHEMATOSUS
  8. HYDROXYCHLOROQUINE [Concomitant]
     Active Substance: HYDROXYCHLOROQUINE
     Indication: SJOGREN^S SYNDROME
     Dosage: 200 MILLIGRAM
     Route: 048
  9. AZATHIOPRINE. [Concomitant]
     Active Substance: AZATHIOPRINE
     Indication: SYSTEMIC LUPUS ERYTHEMATOSUS
  10. METHOTREXATE. [Concomitant]
     Active Substance: METHOTREXATE
     Indication: SJOGREN^S SYNDROME
  11. PREDNISONE. [Suspect]
     Active Substance: PREDNISONE
     Indication: MYASTHENIA GRAVIS
     Dosage: 80 MILLIGRAM, QD
     Route: 065
  12. HYDROXYCHLOROQUINE [Concomitant]
     Active Substance: HYDROXYCHLOROQUINE
     Indication: SYSTEMIC LUPUS ERYTHEMATOSUS
  13. AZATHIOPRINE. [Concomitant]
     Active Substance: AZATHIOPRINE
     Indication: MYASTHENIA GRAVIS
     Dosage: 150 MILLIGRAM, QD
     Route: 065

REACTIONS (1)
  - Calciphylaxis [Recovering/Resolving]
